FAERS Safety Report 21908455 (Version 2)
Quarter: 2023Q1

REPORT INFORMATION
  Report Type: Other
  Country: US (occurrence: US)
  Receive Date: 20230125
  Receipt Date: 20230207
  Transmission Date: 20230418
  Serious: No
  Sender: FDA-Public Use
  Company Number: US-Covis Pharma GmbH-2023COV00017

PATIENT
  Age: 33 Year
  Sex: Female
  Weight: 66.284 kg

DRUGS (2)
  1. MAKENA [Suspect]
     Active Substance: HYDROXYPROGESTERONE CAPROATE
     Indication: Premature delivery
     Route: 058
     Dates: start: 20221201
  2. VITAMINS [Concomitant]
     Active Substance: VITAMINS

REACTIONS (3)
  - Hypoaesthesia [Recovered/Resolved]
  - Limb discomfort [Recovered/Resolved]
  - Injection site pain [Recovered/Resolved]

NARRATIVE: CASE EVENT DATE: 20221201
